FAERS Safety Report 17632279 (Version 1)
Quarter: 2020Q2

REPORT INFORMATION
  Report Type: Other
  Country: CA (occurrence: CA)
  Receive Date: 20200406
  Receipt Date: 20200406
  Transmission Date: 20200713
  Serious: Yes (Other)
  Sender: FDA-Public Use
  Company Number: CA-GLENMARK PHARMACEUTICALS-2020GMK047055

PATIENT

DRUGS (4)
  1. GABAPENTIN. [Suspect]
     Active Substance: GABAPENTIN
     Indication: HEADACHE
     Dosage: 100 MILLIGRAM, OD
     Route: 048
  2. MELATONIN [Concomitant]
     Active Substance: MELATONIN
     Indication: PRODUCT USED FOR UNKNOWN INDICATION
     Dosage: UNK
     Route: 065
  3. ACETAMINOPHEN. [Concomitant]
     Active Substance: ACETAMINOPHEN
     Indication: PRODUCT USED FOR UNKNOWN INDICATION
     Dosage: UNK
     Route: 065
  4. IBUPROFEN. [Concomitant]
     Active Substance: IBUPROFEN
     Indication: PRODUCT USED FOR UNKNOWN INDICATION
     Dosage: UNK
     Route: 065

REACTIONS (10)
  - Inappropriate affect [Not Recovered/Not Resolved]
  - Product use in unapproved indication [Unknown]
  - Crying [Not Recovered/Not Resolved]
  - Abnormal behaviour [Not Recovered/Not Resolved]
  - Confusional state [Not Recovered/Not Resolved]
  - Behaviour disorder [Not Recovered/Not Resolved]
  - Aggression [Not Recovered/Not Resolved]
  - Off label use [Unknown]
  - Restlessness [Not Recovered/Not Resolved]
  - Product administered to patient of inappropriate age [Unknown]
